FAERS Safety Report 10906048 (Version 2)
Quarter: 2015Q2

REPORT INFORMATION
  Report Type: Spontaneous
  Country: US (occurrence: US)
  Receive Date: 20150311
  Receipt Date: 20150611
  Transmission Date: 20150821
  Serious: No
  Sender: FDA-Public Use
  Company Number: US-GLAXOSMITHKLINE-US2015GSK032343

PATIENT
  Sex: Female
  Weight: 57.6 kg

DRUGS (3)
  1. TYKERB [Suspect]
     Active Substance: LAPATINIB DITOSYLATE
     Indication: MULTIPLE SCLEROSIS
     Dosage: 250 MG, QD
     Route: 048
     Dates: start: 20150210
  2. TYKERB [Suspect]
     Active Substance: LAPATINIB DITOSYLATE
     Dosage: 1250 MG, QD
  3. XELODA [Concomitant]
     Active Substance: CAPECITABINE

REACTIONS (4)
  - Urticaria [Unknown]
  - Pruritus [Unknown]
  - Rash generalised [Unknown]
  - Off label use [Unknown]
